FAERS Safety Report 8904740 (Version 2)
Quarter: 2013Q1

REPORT INFORMATION
  Report Type: Report from Study
  Country: JP (occurrence: JP)
  Receive Date: 20121109
  Receipt Date: 20130103
  Transmission Date: 20140127
  Serious: Yes (Hospitalization)
  Sender: FDA-Public Use
  Company Number: JP-ROCHE-676633

PATIENT
  Age: 49 Year
  Sex: Male
  Weight: 41 kg

DRUGS (21)
  1. TOCILIZUMAB [Suspect]
     Indication: RHEUMATOID ARTHRITIS
     Dosage: DOSE REGIMEN 1
     Route: 041
     Dates: start: 20081127, end: 20081127
  2. TOCILIZUMAB [Suspect]
     Dosage: DOSE REGIMEN 2
     Route: 041
     Dates: start: 20081224, end: 20081224
  3. TOCILIZUMAB [Suspect]
     Dosage: DOSE REGIMEN 3
     Route: 041
     Dates: start: 20090121, end: 20090121
  4. TOCILIZUMAB [Suspect]
     Dosage: DOSE REGIMEN 4
     Route: 041
     Dates: start: 20090218, end: 20090218
  5. TOCILIZUMAB [Suspect]
     Dosage: DOSE REGIMEN 5
     Route: 041
     Dates: start: 20090318, end: 20090318
  6. TOCILIZUMAB [Suspect]
     Dosage: DOSE REGIMEN 6
     Route: 041
     Dates: start: 20090415, end: 20090415
  7. TOCILIZUMAB [Suspect]
     Dosage: DOSE REGIMEN 7
     Route: 041
     Dates: start: 20090513, end: 20100106
  8. TOCILIZUMAB [Suspect]
     Dosage: DOSE REGIMEN: 8
     Route: 041
     Dates: start: 20091209, end: 20091209
  9. AZULFIDINE-EN [Concomitant]
     Indication: RHEUMATOID ARTHRITIS
     Dosage: DOSE FORM: ENTERIC DOSE REGIMEN 1
     Route: 048
     Dates: start: 20080218, end: 20091202
  10. BLOPRESS [Concomitant]
     Indication: HYPERTENSION
     Dosage: DOSE REGIMEN 1
     Route: 048
     Dates: start: 20080312
  11. BAYASPIRIN [Concomitant]
     Indication: PROPHYLAXIS
     Dosage: DOSE FORM: ENTERIC DOSE REGIMEN 1
     Route: 048
  12. BAYASPIRIN [Concomitant]
     Dosage: ENT
     Route: 048
  13. PARIET [Concomitant]
     Indication: PROPHYLAXIS AGAINST GASTROINTESTINAL ULCER
     Dosage: DOSE REGIMEN 1
     Route: 048
  14. ITOROL [Concomitant]
     Indication: MYOCARDIAL INFARCTION
     Dosage: DOSE REGIMEN 1
     Route: 048
  15. LORCAM [Concomitant]
     Indication: PROPHYLAXIS
     Dosage: DOSE REGIMEN 1
     Route: 048
  16. LORCAM [Concomitant]
     Dosage: DOSE REGIMEN 2
     Route: 048
     Dates: start: 20081224, end: 20090217
  17. LORCAM [Concomitant]
     Dosage: DOSE REGIMEN 3
     Route: 048
     Dates: start: 20090218, end: 20090318
  18. LENDORMIN [Concomitant]
     Indication: INSOMNIA
     Dosage: DOSE REGIMEN 1
     Route: 048
     Dates: start: 20080218
  19. CLARITIN [Concomitant]
     Indication: HYPERSENSITIVITY
     Route: 048
     Dates: start: 20091030, end: 20091202
  20. LOXONIN [Concomitant]
     Indication: PROPHYLAXIS
     Dosage: SINGLE USE, FORM: POR
     Route: 048
     Dates: start: 20100430
  21. MICARDIS [Concomitant]
     Indication: PROPHYLAXIS
     Dosage: FORM: POR
     Route: 048

REACTIONS (2)
  - Encephalitis [Recovered/Resolved]
  - Pneumonia [Recovered/Resolved]
